FAERS Safety Report 5820072-7 (Version None)
Quarter: 2008Q3

REPORT INFORMATION
  Report Type: 
  Country: None (occurrence: None)
  Receive Date: 20080724
  Receipt Date: 20080716
  Transmission Date: 20090109
  Serious: Yes (Other)
  Sender: FDA-Public Use
  Company Number: BR-JNJFOC-20080704597

PATIENT
  Sex: Female
  Weight: 60 kg

DRUGS (1)
  1. HALDOL [Suspect]
     Indication: DRUG USE FOR UNKNOWN INDICATION
     Route: 048

REACTIONS (4)
  - DYSARTHRIA [None]
  - INCORRECT DOSE ADMINISTERED [None]
  - POISONING [None]
  - SUICIDE ATTEMPT [None]
